FAERS Safety Report 5101385-3 (Version None)
Quarter: 2006Q3

REPORT INFORMATION
  Report Type: 
  Country: None (occurrence: None)
  Receive Date: 20060911
  Receipt Date: 20060517
  Transmission Date: 20061208
  Serious: Yes (Death)
  Sender: FDA-Public Use
  Company Number: DE-SANOFI-SYNTHELABO-A01200603769

PATIENT
  Age: 76 Year
  Sex: Female
  Weight: 82 kg

DRUGS (11)
  1. NOOTROP [Concomitant]
     Indication: ENCEPHALOPATHY
     Route: 065
  2. NOOTROP [Concomitant]
     Indication: APHASIA
     Route: 065
  3. KEPPRA [Concomitant]
     Indication: CONVULSION
     Route: 065
     Dates: start: 20050907
  4. TEBONIN [Interacting]
     Indication: ENCEPHALOPATHY
     Route: 065
     Dates: end: 20050502
  5. TEBONIN [Interacting]
     Indication: APHASIA
     Route: 065
     Dates: end: 20050502
  6. ISCOVER [Suspect]
     Indication: TRANSIENT ISCHAEMIC ATTACK
     Route: 048
  7. ISCOVER [Interacting]
     Indication: ENCEPHALOPATHY
     Route: 048
  8. ISCOVER [Interacting]
     Indication: CAROTID ARTERY STENOSIS
     Route: 048
  9. ISCOVER [Interacting]
     Route: 048
     Dates: start: 20060208
  10. ISCOVER [Interacting]
     Route: 048
     Dates: start: 20060208
  11. ISCOVER [Interacting]
     Route: 048
     Dates: start: 20060208

REACTIONS (2)
  - CEREBRAL HAEMORRHAGE [None]
  - DRUG INTERACTION [None]
